FAERS Safety Report 18209431 (Version 1)
Quarter: 2020Q3

REPORT INFORMATION
  Report Type: Report from Study
  Country: IL (occurrence: IL)
  Receive Date: 20200828
  Receipt Date: 20200828
  Transmission Date: 20201103
  Serious: Yes (Death, Hospitalization)
  Sender: FDA-Public Use
  Company Number: IL-IPSEN BIOPHARMACEUTICALS, INC.-2020-15600

PATIENT
  Age: 83 Year
  Sex: Female

DRUGS (1)
  1. SOMATULINE [Suspect]
     Active Substance: LANREOTIDE ACETATE
     Indication: NEUROENDOCRINE TUMOUR
     Route: 065
     Dates: start: 20180320

REACTIONS (5)
  - Vomiting [Fatal]
  - Malaise [Fatal]
  - Diarrhoea [Fatal]
  - Off label use [Unknown]
  - Disease progression [Fatal]

NARRATIVE: CASE EVENT DATE: 20180320
